FAERS Safety Report 9719802 (Version 1)
Quarter: 2013Q4

REPORT INFORMATION
  Report Type: Spontaneous
  Country: US (occurrence: US)
  Receive Date: 20131128
  Receipt Date: 20131128
  Transmission Date: 20140711
  Serious: Yes (Other)
  Sender: FDA-Public Use
  Company Number: US-009507513-1311USA010672

PATIENT
  Sex: Female

DRUGS (1)
  1. TEMODAR [Suspect]
     Indication: GLIOBLASTOMA
     Route: 048

REACTIONS (1)
  - Glioblastoma [Not Recovered/Not Resolved]
